FAERS Safety Report 6209821-6 (Version None)
Quarter: 2009Q2

REPORT INFORMATION
  Report Type: 
  Country: None (occurrence: None)
  Receive Date: 20090601
  Receipt Date: 20090522
  Transmission Date: 20091009
  Serious: Yes (Other)
  Sender: FDA-Public Use
  Company Number: PHEH2009US04136

PATIENT
  Sex: Female

DRUGS (4)
  1. RECLAST [Suspect]
     Indication: OSTEOPOROSIS POSTMENOPAUSAL
     Dosage: 5 MG, UNK
     Dates: start: 20081208
  2. ASPIRIN [Suspect]
     Dosage: UNK
     Dates: start: 20090101
  3. ATENOLOL [Concomitant]
  4. PRILOSEC [Concomitant]

REACTIONS (13)
  - ABSCESS [None]
  - ALANINE AMINOTRANSFERASE INCREASED [None]
  - ASPARTATE AMINOTRANSFERASE INCREASED [None]
  - BONE DISORDER [None]
  - DENTAL FISTULA [None]
  - HAEMORRHAGE [None]
  - OEDEMA MOUTH [None]
  - ORAL DISORDER [None]
  - ORAL MUCOSAL EXFOLIATION [None]
  - ORAL PAIN [None]
  - OSTEONECROSIS [None]
  - PURULENT DISCHARGE [None]
  - STOMATITIS [None]
